FAERS Safety Report 5841832-2 (Version None)
Quarter: 2008Q3

REPORT INFORMATION
  Report Type: 
  Country: None (occurrence: None)
  Receive Date: 20080812
  Receipt Date: 20080805
  Transmission Date: 20090109
  Serious: Yes (Hospitalization)
  Sender: FDA-Public Use
  Company Number: B0531990A

PATIENT
  Age: 79 Year
  Sex: Male

DRUGS (4)
  1. DUTASTERIDE [Suspect]
     Route: 048
     Dates: start: 20080627, end: 20080713
  2. TAMSULOSIN HCL [Suspect]
     Route: 048
     Dates: start: 20080627, end: 20080713
  3. TRIMETHOPRIM [Suspect]
     Indication: URINARY TRACT INFECTION
     Dosage: 400MCG PER DAY
     Route: 048
     Dates: start: 20080627, end: 20080702
  4. FUROSEMIDE [Concomitant]
     Route: 048

REACTIONS (3)
  - DYSPHAGIA [None]
  - ECZEMA [None]
  - OEDEMA PERIPHERAL [None]
